FAERS Safety Report 6445560-4 (Version None)
Quarter: 2009Q4

REPORT INFORMATION
  Report Type: 
  Country: None (occurrence: None)
  Receive Date: 20091118
  Receipt Date: 20091103
  Transmission Date: 20100525
  Serious: Yes (Death)
  Sender: FDA-Public Use
  Company Number: FR-GENENTECH-293864

PATIENT
  Age: 44 Year
  Sex: Male

DRUGS (6)
  1. MABTHERA [Suspect]
     Indication: NON-HODGKIN'S LYMPHOMA
     Dosage: 800 MG, UNK
     Route: 042
     Dates: start: 20081215, end: 20081215
  2. CYTARABINE [Suspect]
     Indication: NON-HODGKIN'S LYMPHOMA
     Dosage: UNK
     Route: 042
     Dates: start: 20081215, end: 20081219
  3. ETOPOSIDE [Suspect]
     Indication: NON-HODGKIN'S LYMPHOMA
     Dosage: 400 MG, UNK
     Route: 042
     Dates: start: 20091216, end: 20091219
  4. PARACETAMOL [Concomitant]
     Indication: DRUG USE FOR UNKNOWN INDICATION
  5. ZOPHREN [Concomitant]
     Indication: DRUG USE FOR UNKNOWN INDICATION
  6. POLARAMINE [Concomitant]
     Indication: DRUG USE FOR UNKNOWN INDICATION

REACTIONS (1)
  - FEBRILE BONE MARROW APLASIA [None]
